FAERS Safety Report 18771733 (Version 1)
Quarter: 2021Q1

REPORT INFORMATION
  Report Type: Spontaneous
  Country: US (occurrence: US)
  Receive Date: 20210122
  Receipt Date: 20210122
  Transmission Date: 20210419
  Serious: No
  Sender: FDA-Public Use
  Company Number: US-PCCINC-2020-PEL-000382

PATIENT

DRUGS (1)
  1. BACLOFEN. [Suspect]
     Active Substance: BACLOFEN
     Indication: MUSCLE SPASTICITY
     Dosage: 312 (UNITS NOT REPORTED)
     Route: 037

REACTIONS (2)
  - Device leakage [Not Recovered/Not Resolved]
  - Muscle spasticity [Not Recovered/Not Resolved]
